FAERS Safety Report 19169999 (Version 2)
Quarter: 2021Q2

REPORT INFORMATION
  Report Type: Spontaneous
  Country: CA (occurrence: CA)
  Receive Date: 20210422
  Receipt Date: 20210506
  Transmission Date: 20210717
  Serious: Yes (Other)
  Sender: FDA-Public Use
  Company Number: CA-BAYER-2021-124538

PATIENT
  Age: 67 Year
  Sex: Male

DRUGS (1)
  1. DAROLUTAMIDE. [Suspect]
     Active Substance: DAROLUTAMIDE
     Indication: HORMONE-REFRACTORY PROSTATE CANCER
     Dosage: UNK
     Dates: start: 20210305

REACTIONS (1)
  - Hypertensive crisis [None]

NARRATIVE: CASE EVENT DATE: 20210314
